FAERS Safety Report 11078094 (Version 1)
Quarter: 2015Q2

REPORT INFORMATION
  Report Type: Spontaneous
  Country: PT (occurrence: PT)
  Receive Date: 20150430
  Receipt Date: 20150430
  Transmission Date: 20150821
  Serious: Yes (Other)
  Sender: FDA-Public Use
  Company Number: PT-ACCORD-030397

PATIENT
  Age: 71 Year

DRUGS (3)
  1. VORICONAZOLE. [Suspect]
     Active Substance: VORICONAZOLE
     Indication: SCEDOSPORIUM INFECTION
     Dosage: DOSE: 400 MG BID DURING THE FIRST 24 HOURS, FOLLOWED BY 200 MG BID.
     Route: 048
  2. PREDNISONE. [Suspect]
     Active Substance: PREDNISONE
     Indication: TEMPORAL ARTERITIS
  3. METHOTREXATE [Suspect]
     Active Substance: METHOTREXATE
     Indication: TEMPORAL ARTERITIS

REACTIONS (3)
  - Transaminases increased [Recovered/Resolved]
  - Off label use [Unknown]
  - Scedosporium infection [Recovered/Resolved]
